FAERS Safety Report 5704822-6 (Version None)
Quarter: 2008Q2

REPORT INFORMATION
  Report Type: 
  Country: None (occurrence: None)
  Receive Date: 20080414
  Receipt Date: 20080407
  Transmission Date: 20081010
  Serious: Yes (Other)
  Sender: FDA-Public Use
  Company Number: JP-PFIZER INC-2008021856

PATIENT
  Sex: Female

DRUGS (11)
  1. XALATAN [Suspect]
     Indication: GLAUCOMA
     Route: 031
  2. ARTIST [Concomitant]
     Indication: HYPERTENSION
     Route: 048
  3. ENALAPRIL MALEATE [Concomitant]
     Indication: HYPERTENSION
     Route: 048
  4. BUFFERIN [Concomitant]
     Route: 048
  5. MYSLEE [Concomitant]
     Route: 048
  6. LOXONIN [Concomitant]
     Route: 048
  7. MUCOSTA [Concomitant]
     Route: 048
  8. KETOPROFEN [Concomitant]
     Route: 062
  9. SELBEX [Concomitant]
     Route: 048
  10. POSTERISAN FORTE [Concomitant]
     Route: 061
  11. MAGNESIUM OXIDE [Concomitant]
     Route: 048

REACTIONS (1)
  - HYPERTENSION [None]
